FAERS Safety Report 24531558 (Version 1)
Quarter: 2024Q4

REPORT INFORMATION
  Report Type: Report from Study
  Country: US (occurrence: US)
  Receive Date: 20241022
  Receipt Date: 20241022
  Transmission Date: 20250115
  Serious: No
  Sender: ROCHE
  Company Number: US-ROCHE-2762101

PATIENT
  Age: 23 Year
  Sex: Female

DRUGS (6)
  1. PULMOZYME [Suspect]
     Active Substance: DORNASE ALFA
     Indication: Lung disorder
     Dosage: 1 MG/ML, 2.5 MG
     Route: 055
  2. PULMOZYME [Suspect]
     Active Substance: DORNASE ALFA
     Indication: Foreign body in respiratory tract
     Route: 065
  3. PULMOZYME [Suspect]
     Active Substance: DORNASE ALFA
     Indication: Hypersensitivity pneumonitis
  4. PULMOZYME [Suspect]
     Active Substance: DORNASE ALFA
     Indication: Injury
  5. PULMOZYME [Suspect]
     Active Substance: DORNASE ALFA
     Indication: Bronchiectasis
  6. PULMOZYME [Suspect]
     Active Substance: DORNASE ALFA
     Indication: Chronic respiratory failure

REACTIONS (2)
  - Off label use [Unknown]
  - No adverse event [Unknown]
